FAERS Safety Report 13495246 (Version 1)
Quarter: 2017Q2

REPORT INFORMATION
  Report Type: Spontaneous
  Country: US (occurrence: US)
  Receive Date: 20170427
  Receipt Date: 20170427
  Transmission Date: 20170830
  Serious: Yes (Life-Threatening, Hospitalization, Disabling)
  Sender: FDA-Public Use
  Company Number: None

PATIENT
  Age: 18 Year
  Sex: Female
  Weight: 63 kg

DRUGS (2)
  1. ORTHO TRI CYCLEN LO [Suspect]
     Active Substance: ETHINYL ESTRADIOL\NORGESTIMATE
     Indication: CONTRACEPTION
     Route: 048
     Dates: start: 20100801, end: 20100906
  2. ORTHO TRI CYCLEN LO [Suspect]
     Active Substance: ETHINYL ESTRADIOL\NORGESTIMATE
     Indication: DYSMENORRHOEA
     Route: 048
     Dates: start: 20100801, end: 20100906

REACTIONS (4)
  - Deep vein thrombosis [None]
  - Peripheral swelling [None]
  - Varicose vein [None]
  - Pain in extremity [None]

NARRATIVE: CASE EVENT DATE: 20100906
